FAERS Safety Report 6400843-9 (Version None)
Quarter: 2009Q4

REPORT INFORMATION
  Report Type: 
  Country: None (occurrence: None)
  Receive Date: 20091009
  Receipt Date: 20090724
  Transmission Date: 20100525
  Serious: Yes (Death, Other)
  Sender: FDA-Public Use
  Company Number: 2009SP016636

PATIENT
  Age: 70 Year
  Sex: Female
  Weight: 68.4932 kg

DRUGS (4)
  1. TEMODAR [Suspect]
     Indication: GLIOBLASTOMA MULTIFORME
     Dosage: 130 MG; QD; PO
     Route: 048
     Dates: start: 20080608, end: 20090628
  2. KEPPRA [Concomitant]
  3. DEXAMETHASONE TAB [Concomitant]
  4. ZOFRAN [Concomitant]

REACTIONS (3)
  - APLASTIC ANAEMIA [None]
  - PANCYTOPENIA [None]
  - PLATELET COUNT DECREASED [None]
